FAERS Safety Report 23552986 (Version 1)
Quarter: 2024Q1

REPORT INFORMATION
  Report Type: Other
  Country: US (occurrence: US)
  Receive Date: 20240222
  Receipt Date: 20240222
  Transmission Date: 20240410
  Serious: Yes (Hospitalization, Other)
  Sender: FDA-Public Use
  Company Number: US-Renata Limited-2153542

PATIENT
  Age: 86 Year
  Sex: Male

DRUGS (3)
  1. MEMANTINE HYDROCHLORIDE [Suspect]
     Active Substance: MEMANTINE HYDROCHLORIDE
     Route: 065
  2. METOPROLOL SUCCINATE [Concomitant]
     Active Substance: METOPROLOL SUCCINATE
     Route: 065
  3. MECLIZINE [Concomitant]
     Active Substance: MECLIZINE HYDROCHLORIDE
     Route: 065

REACTIONS (11)
  - Hallucination, auditory [Recovered/Resolved]
  - Product use in unapproved indication [Unknown]
  - Wrong product administered [Unknown]
  - Overdose [Unknown]
  - Confusional state [Recovered/Resolved]
  - Somnolence [Recovered/Resolved]
  - Agitation [Recovered/Resolved]
  - Hypertensive crisis [Recovering/Resolving]
  - Behaviour disorder [Recovered/Resolved]
  - Echolalia [Recovered/Resolved]
  - Mental status changes [Recovered/Resolved]
